FAERS Safety Report 6998838-X (Version None)
Quarter: 2010Q3

REPORT INFORMATION
  Report Type: 
  Country: None (occurrence: None)
  Receive Date: 20100920
  Receipt Date: 20091117
  Transmission Date: 20110219
  Serious: No
  Sender: FDA-Public Use
  Company Number: US-ASTRAZENECA-2008UW27408

PATIENT
  Age: 56 Year
  Sex: Female
  Weight: 145.1 kg

DRUGS (5)
  1. SEROQUEL [Suspect]
     Indication: POST-TRAUMATIC STRESS DISORDER
     Dosage: 25 MG, 50 MG, 100 MG, 200 MG
     Route: 048
     Dates: start: 20010101, end: 20080301
  2. XENICAL [Concomitant]
     Dates: start: 19920101
  3. RISPERDAL [Concomitant]
  4. CYMBALTA [Concomitant]
  5. PROZAC [Concomitant]

REACTIONS (2)
  - FALL [None]
  - TYPE 2 DIABETES MELLITUS [None]
